FAERS Safety Report 10769490 (Version 1)
Quarter: 2015Q1

REPORT INFORMATION
  Report Type: Spontaneous
  Country: US (occurrence: None)
  Receive Date: 20150205
  Receipt Date: 20150205
  Transmission Date: 20150721
  Serious: Yes (Hospitalization)
  Sender: FDA-Public Use
  Company Number: None

PATIENT
  Age: 60 Year
  Sex: Female
  Weight: 96 kg

DRUGS (11)
  1. VITAMIN D [Concomitant]
     Active Substance: CHOLECALCIFEROL
  2. LANTUS [Concomitant]
     Active Substance: INSULIN GLARGINE
  3. BENICAR [Concomitant]
     Active Substance: OLMESARTAN MEDOXOMIL
  4. NOVOLOG [Concomitant]
     Active Substance: INSULIN ASPART
  5. COREG [Concomitant]
     Active Substance: CARVEDILOL
  6. KLOR-CON [Concomitant]
     Active Substance: POTASSIUM CHLORIDE
  7. SYNTHROID [Concomitant]
     Active Substance: LEVOTHYROXINE SODIUM
  8. PRAVACHOL [Concomitant]
     Active Substance: PRAVASTATIN SODIUM
  9. ALPRAZOLAM. [Concomitant]
     Active Substance: ALPRAZOLAM
  10. APIXIBAN [Suspect]
     Active Substance: APIXABAN
     Indication: ATRIAL FIBRILLATION
     Dosage: CHRONIC, 5 MG BID PO
     Route: 048
  11. DEMADEX [Concomitant]
     Active Substance: TORSEMIDE

REACTIONS (4)
  - Fall [None]
  - Hypertension [None]
  - Haemorrhage intracranial [None]
  - Intracranial pressure increased [None]

NARRATIVE: CASE EVENT DATE: 20141211
